FAERS Safety Report 4285500-X (Version None)
Quarter: 2004Q1

REPORT INFORMATION
  Report Type: 
  Country: None (occurrence: None)
  Receive Date: 20040202
  Receipt Date: 20040117
  Transmission Date: 20041129
  Serious: Yes (Hospitalization)
  Sender: FDA-Public Use
  Company Number: 188736

PATIENT
  Age: 43 Year
  Sex: Female
  Weight: 90.7194 kg

DRUGS (7)
  1. AVONEX [Suspect]
     Indication: MULTIPLE SCLEROSIS
     Dosage: 30 MCG QW IM
     Route: 030
     Dates: start: 19970101
  2. SEROQUEL [Concomitant]
  3. WELLBUTRIN SR [Concomitant]
  4. KLONOPIN [Concomitant]
  5. RITALIN [Concomitant]
  6. NAPROXEN [Concomitant]
  7. NORTRIPTYLINE HCL [Concomitant]

REACTIONS (4)
  - BIPOLAR DISORDER [None]
  - BLOOD CHOLESTEROL INCREASED [None]
  - CONDITION AGGRAVATED [None]
  - DEPRESSION [None]
